FAERS Safety Report 21216598 (Version 1)
Quarter: 2022Q3

REPORT INFORMATION
  Report Type: Spontaneous
  Country: US (occurrence: None)
  Receive Date: 20220815
  Receipt Date: 20220815
  Transmission Date: 20221027
  Serious: Yes (Hospitalization)
  Sender: FDA-Public Use
  Company Number: None

PATIENT
  Age: 66 Year
  Sex: Female
  Weight: 103 kg

DRUGS (2)
  1. FERUMOXYTOL [Suspect]
     Active Substance: FERUMOXYTOL
     Indication: Iron deficiency anaemia
     Dosage: FREQUENCY : ONCE;?
     Route: 042
  2. FERUMOXYTOL [Concomitant]
     Active Substance: FERUMOXYTOL
     Dates: start: 20220815, end: 20220815

REACTIONS (6)
  - Syncope [None]
  - Dyspnoea [None]
  - Fibrin D dimer increased [None]
  - Dizziness [None]
  - Hyperkalaemia [None]
  - Cardio-respiratory arrest [None]

NARRATIVE: CASE EVENT DATE: 20220815
